FAERS Safety Report 9876272 (Version 1)
Quarter: 2014Q1

REPORT INFORMATION
  Report Type: Spontaneous
  Country: US (occurrence: None)
  Receive Date: 20140205
  Receipt Date: 20140205
  Transmission Date: 20141002
  Serious: Yes (Life-Threatening)
  Sender: FDA-Public Use
  Company Number: None

PATIENT
  Age: 70 Year
  Sex: Male
  Weight: 76.66 kg

DRUGS (11)
  1. LANTUS [Suspect]
     Indication: TYPE 2 DIABETES MELLITUS
     Dosage: 20 UNITS  QD  SUBCUTANEOUS
     Route: 058
  2. ONE TOUCH TEST ONE STRIP [Concomitant]
  3. LABETALOL HCL [Concomitant]
  4. ASPIR-81 [Concomitant]
  5. PRILOSEC [Concomitant]
  6. MINOCYCLINE HCL (WATSON LABORATORIES) [Concomitant]
  7. MULTIVITAMINS [Concomitant]
  8. MIRALAX [Concomitant]
  9. SIMVASTATIN [Concomitant]
  10. HYDRALAZINE HCL [Concomitant]
  11. SINEMET [Concomitant]

REACTIONS (2)
  - Loss of consciousness [None]
  - Blood glucose decreased [None]
